FAERS Safety Report 9164971 (Version 3)
Quarter: 2013Q2

REPORT INFORMATION
  Report Type: Spontaneous
  Country: US (occurrence: None)
  Receive Date: 20130228
  Receipt Date: 20130628
  Transmission Date: 20140414
  Serious: Yes (Hospitalization)
  Sender: FDA-Public Use
  Company Number: ALK-2013-001311

PATIENT
  Age: 37 Year
  Sex: Male
  Weight: 84.4 kg

DRUGS (3)
  1. VIVITROL [Suspect]
     Indication: DRUG DEPENDENCE
     Route: 030
     Dates: start: 20130211
  2. CATAPRESSAN (CLONIDINE) [Suspect]
     Indication: WITHDRAWAL SYNDROME
     Dates: start: 20130211, end: 20130213
  3. SUBOXONE [Concomitant]

REACTIONS (5)
  - Heart rate decreased [None]
  - Withdrawal syndrome [None]
  - Asthenia [None]
  - Dizziness [None]
  - Incorrect dose administered [None]
